FAERS Safety Report 5011892-X (Version None)
Quarter: 2006Q2

REPORT INFORMATION
  Report Type: 
  Country: None (occurrence: None)
  Receive Date: 20060524
  Receipt Date: 20060524
  Transmission Date: 20061013
  Serious: No
  Sender: FDA-Public Use
  Company Number: None

PATIENT
  Age: 49 Year
  Sex: Female

DRUGS (2)
  1. MEPERIDINE HCL [Suspect]
     Indication: PAIN
     Dosage: 100MG
  2. MEPERIDINE HCL [Suspect]
     Indication: PANCREATITIS
     Dosage: 100MG

REACTIONS (4)
  - CARDIO-RESPIRATORY ARREST [None]
  - CIRCUMSTANCE OR INFORMATION CAPABLE OF LEADING TO MEDICATION ERROR [None]
  - CONVULSION [None]
  - INCORRECT DOSE ADMINISTERED [None]
